FAERS Safety Report 6166477-9 (Version None)
Quarter: 2009Q2

REPORT INFORMATION
  Report Type: 
  Country: None (occurrence: None)
  Receive Date: 20090424
  Receipt Date: 20090414
  Transmission Date: 20091009
  Serious: Yes (Other)
  Sender: FDA-Public Use
  Company Number: DE-AMGEN-QUU341997

PATIENT
  Sex: Female
  Weight: 73 kg

DRUGS (2)
  1. NEULASTA [Suspect]
     Indication: CHEMOTHERAPY
     Route: 058
     Dates: start: 20090312, end: 20090312
  2. BENDAMUSTIN [Concomitant]
     Dates: start: 20090310, end: 20090311

REACTIONS (2)
  - NEUTROPENIA [None]
  - THERAPEUTIC RESPONSE DECREASED [None]
